FAERS Safety Report 4344661-4 (Version None)
Quarter: 2004Q2

REPORT INFORMATION
  Report Type: 
  Country: None (occurrence: None)
  Receive Date: 20040421
  Receipt Date: 20040412
  Transmission Date: 20050107
  Serious: Yes (Hospitalization)
  Sender: FDA-Public Use
  Company Number: 04-04-0559

PATIENT
  Age: 68 Year
  Sex: Male

DRUGS (1)
  1. CLOZAPINE [Suspect]
     Indication: BIPOLAR DISORDER
     Dosage: 150-400 MG QD ORAL
     Route: 048
     Dates: start: 20031101

REACTIONS (3)
  - CONVULSION [None]
  - FALL [None]
  - HEAD INJURY [None]
